FAERS Safety Report 5639066-X (Version None)
Quarter: 2008Q1

REPORT INFORMATION
  Report Type: 
  Country: None (occurrence: None)
  Receive Date: 20080226
  Receipt Date: 20070518
  Transmission Date: 20080703
  Serious: No
  Sender: FDA-Public Use
  Company Number: US-BAUSCH-2007BL001641

PATIENT
  Age: 58 Year
  Sex: Male

DRUGS (3)
  1. FLUNISOLIDE NASAL SOLUTION USP 0.025% [Suspect]
     Indication: RHINORRHOEA
     Route: 045
     Dates: start: 20070504
  2. CHOLESTEROL- AND TRIGLYCERIDE REDUCERS [Concomitant]
     Indication: BLOOD CHOLESTEROL INCREASED
  3. VITAMINS [Concomitant]
     Indication: VITAMIN SUPPLEMENTATION

REACTIONS (1)
  - PAROSMIA [None]
